FAERS Safety Report 9204447 (Version 1)
Quarter: 2013Q2

REPORT INFORMATION
  Report Type: Spontaneous
  Country: GB (occurrence: GB)
  Receive Date: 20130402
  Receipt Date: 20130402
  Transmission Date: 20140414
  Serious: Yes (Death, Other)
  Sender: FDA-Public Use
  Company Number: GB-ROCHE-1207041

PATIENT
  Age: 58 Year
  Sex: Male
  Weight: 75 kg

DRUGS (4)
  1. MYCOPHENOLATE MOFETIL [Suspect]
     Indication: IRIDOCYCLITIS
     Route: 048
     Dates: start: 20110301, end: 20120331
  2. HUMIRA [Suspect]
     Indication: IRIDOCYCLITIS
     Route: 058
     Dates: start: 20111215
  3. HUMIRA [Suspect]
     Route: 058
     Dates: end: 20120331
  4. ACITRETIN [Concomitant]

REACTIONS (6)
  - Myelofibrosis [Fatal]
  - Anaemia [Not Recovered/Not Resolved]
  - Metastases to lymph nodes [Not Recovered/Not Resolved]
  - Pancytopenia [Not Recovered/Not Resolved]
  - Splenomegaly [Not Recovered/Not Resolved]
  - Squamous cell carcinoma of skin [Not Recovered/Not Resolved]
